FAERS Safety Report 8196601-8 (Version None)
Quarter: 2012Q1

REPORT INFORMATION
  Report Type: 
  Country: None (occurrence: None)
  Receive Date: 20120309
  Receipt Date: 20120229
  Transmission Date: 20120608
  Serious: Yes (Hospitalization)
  Sender: FDA-Public Use
  Company Number: US-BAYER-2011-013009

PATIENT
  Age: 39 Year
  Sex: Female
  Weight: 60 kg

DRUGS (5)
  1. VISINE EYE DROPS [Concomitant]
     Dosage: UNK UNK, QD
     Route: 047
     Dates: start: 20051018
  2. YASMIN [Suspect]
     Indication: CONTRACEPTION
     Dosage: UNK
     Dates: start: 20020926, end: 20050215
  3. ZITHROMAX [Concomitant]
     Dosage: 250 MG, UNK
     Route: 048
     Dates: start: 20051014, end: 20051018
  4. ASTELIN [Concomitant]
     Dosage: 137 ?G, UNK
     Route: 055
     Dates: start: 20051004
  5. ARMODAFINIL [Concomitant]
     Dosage: 150 MG, UNK
     Route: 048
     Dates: start: 20050727

REACTIONS (12)
  - VISION BLURRED [None]
  - BLINDNESS UNILATERAL [None]
  - RETINAL VEIN THROMBOSIS [None]
  - SCOTOMA [None]
  - GENERAL PHYSICAL HEALTH DETERIORATION [None]
  - MACULAR FIBROSIS [None]
  - RETINAL ARTERY THROMBOSIS [None]
  - MACULAR HOLE [None]
  - RETINAL DETACHMENT [None]
  - VISUAL IMPAIRMENT [None]
  - VISUAL FIELD DEFECT [None]
  - PAIN [None]
